FAERS Safety Report 14800090 (Version 1)
Quarter: 2018Q2

REPORT INFORMATION
  Report Type: Spontaneous
  Country: CN (occurrence: CN)
  Receive Date: 20180424
  Receipt Date: 20180424
  Transmission Date: 20180711
  Serious: Yes (Other)
  Sender: FDA-Public Use
  Company Number: CN-OTSUKA-2018_009567

PATIENT
  Age: 16 Year
  Sex: Male

DRUGS (14)
  1. MITOXANTRONE [Suspect]
     Active Substance: MITOXANTRONE HYDROCHLORIDE
     Indication: STEM CELL TRANSPLANT
  2. G-CSF [Suspect]
     Active Substance: GRANULOCYTE COLONY-STIMULATING FACTOR NOS
     Indication: STEM CELL TRANSPLANT
  3. BUSULFEX [Suspect]
     Active Substance: BUSULFAN
     Indication: ACUTE MYELOID LEUKAEMIA
     Dosage: 0.8 MG/KG, UNK (Q6H -8D TO -5D)
     Route: 065
  4. ARA-C [Suspect]
     Active Substance: CYTARABINE
     Indication: STEM CELL TRANSPLANT
  5. CCNU [Suspect]
     Active Substance: LOMUSTINE
     Indication: STEM CELL TRANSPLANT
  6. CCNU [Suspect]
     Active Substance: LOMUSTINE
     Indication: ACUTE MYELOID LEUKAEMIA
     Dosage: 250 MG/M2, UNK (- 4D)
     Route: 065
  7. CYCLOPHOSPHAMIDE. [Suspect]
     Active Substance: CYCLOPHOSPHAMIDE
     Indication: ACUTE MYELOID LEUKAEMIA
     Dosage: 60 MG/KG, UNK (-3D TO -2D)
     Route: 065
  8. 2-CDA [Suspect]
     Active Substance: CLADRIBINE
     Indication: STEM CELL TRANSPLANT
  9. CYCLOPHOSPHAMIDE. [Suspect]
     Active Substance: CYCLOPHOSPHAMIDE
     Indication: STEM CELL TRANSPLANT
  10. ARA-C [Suspect]
     Active Substance: CYTARABINE
     Indication: ACUTE MYELOID LEUKAEMIA
     Dosage: 2 G/M2, UNK (IN 4-HOUR INFUSIONS, STARTED 2 HOURS AFTER 2-CDA, FOR 5 CONSECUTIVE DAYS)
     Route: 065
  11. MITOXANTRONE [Suspect]
     Active Substance: MITOXANTRONE HYDROCHLORIDE
     Indication: ACUTE MYELOID LEUKAEMIA
     Dosage: 10 MG, UNK
     Route: 042
  12. BUSULFEX [Suspect]
     Active Substance: BUSULFAN
     Indication: STEM CELL TRANSPLANT
  13. 2-CDA [Suspect]
     Active Substance: CLADRIBINE
     Indication: ACUTE MYELOID LEUKAEMIA
     Dosage: 5 MG/M2, UNK (IN 2-HOUR INTRAVENOUS INFUSIONS, FOR 5 CONSECUTIVE DAYS)
     Route: 042
  14. G-CSF [Suspect]
     Active Substance: GRANULOCYTE COLONY-STIMULATING FACTOR NOS
     Indication: ACUTE MYELOID LEUKAEMIA
     Dosage: 300 ?G, UNK (FOR 6 DAYS, STARTED 24 HOURS)
     Route: 058

REACTIONS (4)
  - Product use in unapproved indication [Unknown]
  - Gastrointestinal toxicity [Unknown]
  - Febrile neutropenia [Unknown]
  - Klebsiella test positive [Unknown]
